FAERS Safety Report 6712794-0 (Version None)
Quarter: 2010Q2

REPORT INFORMATION
  Report Type: 
  Country: None (occurrence: None)
  Receive Date: 20100506
  Receipt Date: 20090422
  Transmission Date: 20101027
  Serious: No
  Sender: FDA-Public Use
  Company Number: A0780150A

PATIENT
  Sex: Female

DRUGS (2)
  1. AUGMENTIN '125' [Suspect]
     Indication: SINUSITIS
     Dosage: 600MG PER DAY
     Route: 048
     Dates: start: 20090420, end: 20090422
  2. ASPIRIN [Concomitant]

REACTIONS (1)
  - PRURITUS [None]
